FAERS Safety Report 4580171-7 (Version None)
Quarter: 2005Q1

REPORT INFORMATION
  Report Type: 
  Country: None (occurrence: None)
  Receive Date: 20050214
  Receipt Date: 20050209
  Transmission Date: 20050727
  Serious: Yes (Hospitalization, Other)
  Sender: FDA-Public Use
  Company Number: US-JNJFOC-20041002801

PATIENT
  Age: 31 Year
  Sex: Female
  Weight: 57.15 kg

DRUGS (17)
  1. DURAGESIC [Suspect]
     Route: 062
  2. DURAGESIC [Suspect]
     Route: 062
  3. DURAGESIC [Suspect]
     Route: 062
  4. DURAGESIC [Suspect]
     Route: 062
  5. DURAGESIC [Suspect]
     Route: 062
  6. FENTANYL [Concomitant]
     Route: 008
  7. PERCOCET [Concomitant]
     Route: 049
  8. PERCOCET [Concomitant]
     Indication: PAIN
     Dosage: 2-4 PER DAY, AS NEEDED
     Route: 049
  9. MARIJUANA [Concomitant]
     Indication: NAUSEA
     Route: 055
  10. HYDROXYZINE [Concomitant]
     Indication: NAUSEA
     Route: 049
  11. DEMEROL [Concomitant]
  12. FAMOTIDINE [Concomitant]
  13. NUBAIN [Concomitant]
  14. MORPHINE [Concomitant]
  15. FUROSEMIDE [Concomitant]
  16. GATIFLOXACIN [Concomitant]
  17. KETOROLAC [Concomitant]

REACTIONS (7)
  - CAESAREAN SECTION [None]
  - DRUG EXPOSURE DURING PREGNANCY [None]
  - DRUG WITHDRAWAL SYNDROME [None]
  - FOETAL GROWTH RETARDATION [None]
  - GASTROINTESTINAL INFECTION [None]
  - PLACENTAL DISORDER [None]
  - WEIGHT DECREASED [None]
